FAERS Safety Report 20440043 (Version 2)
Quarter: 2024Q3

REPORT INFORMATION
  Report Type: Spontaneous
  Country: CA (occurrence: CA)
  Receive Date: 20220207
  Receipt Date: 20240810
  Transmission Date: 20241017
  Serious: Yes (Hospitalization, Other)
  Sender: B BRAUN
  Company Number: CA-B.Braun Medical Inc.-2124695

PATIENT
  Sex: Female

DRUGS (63)
  1. ACETAMINOPHEN [Suspect]
     Active Substance: ACETAMINOPHEN
  2. ADALIMUMAB [Suspect]
     Active Substance: ADALIMUMAB
  3. GRAMICIDIN\NEOMYCIN SULFATE\POLYMYXIN B SULFATE [Suspect]
     Active Substance: GRAMICIDIN\NEOMYCIN SULFATE\POLYMYXIN B SULFATE
  4. Biaxon XL [Concomitant]
  5. VITAMIN D NOS [Concomitant]
     Active Substance: CHOLECALCIFEROL\ERGOCALCIFEROL
  6. VALSARTAN [Concomitant]
     Active Substance: VALSARTAN
  7. ZINC OXIDE [Suspect]
     Active Substance: ZINC OXIDE
  8. ZEAXANTHIN [Suspect]
     Active Substance: ZEAXANTHIN
  9. XANTOFYL PALMITATE [Suspect]
     Active Substance: XANTOFYL PALMITATE
  10. .ALPHA.-TOCOPHEROL [Suspect]
     Active Substance: .ALPHA.-TOCOPHEROL
  11. VITAMIN D3 [Suspect]
     Active Substance: CHOLECALCIFEROL
  12. VALSARTAN [Suspect]
     Active Substance: VALSARTAN
  13. TRIAMCINOLONE ACETONIDE [Suspect]
     Active Substance: TRIAMCINOLONE ACETONIDE
  14. SULFAMETHOXAZOLE\TRIMETHOPRIM [Suspect]
     Active Substance: SULFAMETHOXAZOLE\TRIMETHOPRIM
  15. SODIUM CHLORIDE [Suspect]
     Active Substance: SODIUM CHLORIDE
  16. SODIUM BICARBONATE [Suspect]
     Active Substance: SODIUM BICARBONATE
  17. REFRESH TEARS [Suspect]
     Active Substance: CARBOXYMETHYLCELLULOSE SODIUM
  18. PREGABALIN [Suspect]
     Active Substance: PREGABALIN
  19. PREDNISONE [Suspect]
     Active Substance: PREDNISONE
  20. POLYMYXIN B SULFATE [Suspect]
     Active Substance: POLYMYXIN B SULFATE
  21. PANTOPRAZOLE SODIUM [Suspect]
     Active Substance: PANTOPRAZOLE SODIUM
  22. NICOTINE POLACRILEX [Suspect]
     Active Substance: NICOTINE
  23. NICOTINE [Suspect]
     Active Substance: NICOTINE
  24. NICODERM CQ [Suspect]
     Active Substance: NICOTINE
  25. NEOMYCIN SULFATE [Suspect]
     Active Substance: NEOMYCIN SULFATE
  26. NADOLOL [Suspect]
     Active Substance: NADOLOL
  27. MUPIROCIN CALCIUM [Suspect]
     Active Substance: MUPIROCIN CALCIUM
  28. MUPIROCIN [Suspect]
     Active Substance: MUPIROCIN
  29. MORPHINE SULFATE [Suspect]
     Active Substance: MORPHINE SULFATE
  30. METRONIDAZOLE [Suspect]
     Active Substance: METRONIDAZOLE
  31. MESALAMINE [Suspect]
     Active Substance: MESALAMINE
  32. MESALAMINE [Suspect]
     Active Substance: MESALAMINE
  33. MAGNESIUM SULFATE [Suspect]
     Active Substance: MAGNESIUM SULFATE\MAGNESIUM SULFATE HEPTAHYDRATE
  34. POLYETHYLENE GLYCOL\POTASSIUM CHLORIDE\SODIUM BICARBONATE [Suspect]
     Active Substance: POLYETHYLENE GLYCOL\POTASSIUM CHLORIDE\SODIUM BICARBONATE
  35. POLYETHYLENE GLYCOLS [Suspect]
     Active Substance: POLYETHYLENE GLYCOLS
  36. LOPERAMIDE [Suspect]
     Active Substance: LOPERAMIDE
  37. HYDROMORPHONE HYDROCHLORIDE [Suspect]
     Active Substance: HYDROMORPHONE HYDROCHLORIDE
  38. HYDROCHLOROTHIAZIDE [Suspect]
     Active Substance: HYDROCHLOROTHIAZIDE
  39. HUMIRA [Suspect]
     Active Substance: ADALIMUMAB
  40. GRAMICIDIN [Suspect]
     Active Substance: GRAMICIDIN
  41. GLYCERIN [Suspect]
     Active Substance: GLYCERIN
  42. GLYCERIN [Suspect]
     Active Substance: GLYCERIN
  43. FLUTICASONE FUROATE [Suspect]
     Active Substance: FLUTICASONE FUROATE
  44. FLOVENT [Suspect]
     Active Substance: FLUTICASONE PROPIONATE
  45. ERTAPENEM SODIUM [Suspect]
     Active Substance: ERTAPENEM SODIUM
  46. DIPHENHYDRAMINE HYDROCHLORIDE [Suspect]
     Active Substance: DIPHENHYDRAMINE HYDROCHLORIDE
  47. DESONIDE [Suspect]
     Active Substance: DESONIDE
  48. .ALPHA.-TOCOPHEROL, D- [Suspect]
     Active Substance: .ALPHA.-TOCOPHEROL, D-
  49. CUPRIC OXIDE [Suspect]
     Active Substance: CUPRIC OXIDE
  50. CLOTRIMAZOLE [Suspect]
     Active Substance: CLOTRIMAZOLE
  51. CLARITHROMYCIN [Suspect]
     Active Substance: CLARITHROMYCIN
  52. CETIRIZINE HYDROCHLORIDE [Suspect]
     Active Substance: CETIRIZINE HYDROCHLORIDE
  53. CALCIUM CARBONATE [Suspect]
     Active Substance: CALCIUM CARBONATE
  54. BUDESONIDE [Suspect]
     Active Substance: BUDESONIDE
  55. BISACODYL [Suspect]
     Active Substance: BISACODYL
  56. BETAMETHASONE VALERATE [Suspect]
     Active Substance: BETAMETHASONE VALERATE
  57. BETAMETHASONE DIPROPIONATE [Suspect]
     Active Substance: BETAMETHASONE DIPROPIONATE
  58. AZITHROMYCIN [Suspect]
     Active Substance: AZITHROMYCIN
  59. ATROPINE SULFATE\DIPHENOXYLATE [Suspect]
     Active Substance: ATROPINE SULFATE\DIPHENOXYLATE
  60. ATORVASTATIN CALCIUM [Suspect]
     Active Substance: ATORVASTATIN CALCIUM
  61. AMOXICILLIN TRIHYDRATE [Suspect]
     Active Substance: AMOXICILLIN
  62. ALPRAZOLAM [Suspect]
     Active Substance: ALPRAZOLAM
  63. ASPIRIN\CITRIC ACID\SODIUM BICARBONATE [Suspect]
     Active Substance: ASPIRIN\CITRIC ACID MONOHYDRATE\SODIUM BICARBONATE

REACTIONS (2)
  - Drug ineffective [Unknown]
  - Macular degeneration [Unknown]
